FAERS Safety Report 4985933-X (Version None)
Quarter: 2006Q2

REPORT INFORMATION
  Report Type: 
  Country: None (occurrence: None)
  Receive Date: 20060421
  Receipt Date: 20060413
  Transmission Date: 20061013
  Serious: Yes (Hospitalization, Disabling)
  Sender: FDA-Public Use
  Company Number: 2006017606

PATIENT
  Age: 60 Year
  Sex: Male
  Weight: 58 kg

DRUGS (9)
  1. NORVASC [Suspect]
     Indication: HYPERTENSION
     Dosage: 2.5 MG (2.5 MG, QD), ORAL
     Route: 048
     Dates: start: 20040309, end: 20040720
  2. MICARDIS [Suspect]
     Indication: HYPERTENSION
     Dosage: 40 MG (40 MG, QD), ORAL
     Route: 048
     Dates: start: 20040129, end: 20040803
  3. SENNARIDE (SENNOSIDE A+B) [Concomitant]
  4. ASPARA-CA (ASPARTATE CALCIUM) [Concomitant]
  5. VIT K CAP [Concomitant]
  6. PHENYTOIN [Concomitant]
  7. DEPAKENE [Concomitant]
  8. PHENOBAL (PHENOBARBITAL) [Concomitant]
  9. RABEPRAZOLE SODIUM [Concomitant]

REACTIONS (4)
  - BLOOD GLUCOSE DECREASED [None]
  - BLOOD PRESSURE INADEQUATELY CONTROLLED [None]
  - CAROTID ARTERY STENOSIS [None]
  - CEREBRAL INFARCTION [None]
